FAERS Safety Report 7489298-3 (Version None)
Quarter: 2011Q2

REPORT INFORMATION
  Report Type: 
  Country: None (occurrence: None)
  Receive Date: 20110518
  Receipt Date: 20110512
  Transmission Date: 20111010
  Serious: Yes (Other)
  Sender: FDA-Public Use
  Company Number: CZ-AMGEN-KDC414312

PATIENT
  Age: 51 Year
  Sex: Female

DRUGS (3)
  1. TRASTUZUMAB [Concomitant]
     Dosage: UNK UNK, UNK
     Dates: start: 20071206, end: 20100615
  2. DOCETAXEL [Concomitant]
     Dosage: UNK UNK, UNK
     Dates: start: 20091029, end: 20100406
  3. DENOSUMAB [Suspect]
     Indication: METASTASES TO BONE
     Dosage: UNK UNK, Q4WK
     Route: 042
     Dates: start: 20071123, end: 20100406

REACTIONS (1)
  - OSTEONECROSIS OF JAW [None]
